FAERS Safety Report 8407679-8 (Version None)
Quarter: 2012Q2

REPORT INFORMATION
  Report Type: 
  Country: None (occurrence: None)
  Receive Date: 20120604
  Receipt Date: 20120530
  Transmission Date: 20120825
  Serious: No
  Sender: FDA-Public Use
  Company Number: US-PFIZER INC-2012130995

PATIENT
  Sex: Female

DRUGS (4)
  1. BENADRYL [Concomitant]
     Dosage: UNK
  2. LORTAB [Concomitant]
     Dosage: UNK
  3. SOMA [Concomitant]
     Dosage: UNK
  4. LYRICA [Suspect]
     Dosage: 75 MG, 2X/DAY
     Dates: start: 20111001

REACTIONS (1)
  - DIZZINESS [None]
